FAERS Safety Report 7991071-4 (Version None)
Quarter: 2011Q4

REPORT INFORMATION
  Report Type: 
  Country: None (occurrence: None)
  Receive Date: 20111219
  Receipt Date: 20111215
  Transmission Date: 20120403
  Serious: Yes (Death, Other)
  Sender: FDA-Public Use
  Company Number: JP-ROCHE-783515

PATIENT
  Sex: Female

DRUGS (21)
  1. AVASTIN [Suspect]
     Route: 041
     Dates: start: 20110413, end: 20110413
  2. CISPLATIN [Concomitant]
     Indication: LUNG ADENOCARCINOMA
     Route: 041
     Dates: start: 20110301, end: 20110301
  3. AVASTIN [Suspect]
     Indication: LUNG ADENOCARCINOMA
     Route: 041
     Dates: start: 20110301, end: 20110301
  4. AVASTIN [Suspect]
     Route: 041
     Dates: start: 20110510, end: 20110510
  5. EMEND [Concomitant]
     Route: 048
     Dates: start: 20110510, end: 20110510
  6. CISPLATIN [Concomitant]
     Route: 041
     Dates: start: 20110413, end: 20110413
  7. CISPLATIN [Concomitant]
     Route: 041
     Dates: start: 20110510, end: 20110510
  8. DOCETAXEL [Concomitant]
     Dosage: REPORTED AS DOCETAXEL HYDRATE
     Route: 041
     Dates: start: 20110301, end: 20110301
  9. DOCETAXEL [Concomitant]
     Route: 041
     Dates: start: 20110510, end: 20110510
  10. EMEND [Concomitant]
     Indication: PROPHYLAXIS OF NAUSEA AND VOMITING
     Route: 048
     Dates: start: 20110301, end: 20110301
  11. EMEND [Concomitant]
     Route: 048
     Dates: start: 20110323, end: 20110323
  12. EMEND [Concomitant]
     Route: 048
     Dates: start: 20110511, end: 20110512
  13. DOCETAXEL [Concomitant]
     Route: 041
     Dates: start: 20110323, end: 20110323
  14. EMEND [Concomitant]
     Route: 048
     Dates: start: 20110413, end: 20110413
  15. D-MANNITOL [Concomitant]
     Dosage: DOSAGE IS UNCERTAIN.
     Route: 042
  16. CISPLATIN [Concomitant]
     Route: 041
     Dates: start: 20110323, end: 20110323
  17. DOCETAXEL [Concomitant]
     Route: 041
     Dates: start: 20110413, end: 20110413
  18. EMEND [Concomitant]
     Route: 048
     Dates: start: 20110324, end: 20110325
  19. EMEND [Concomitant]
     Route: 048
     Dates: start: 20110414, end: 20110415
  20. AVASTIN [Suspect]
     Route: 041
     Dates: start: 20110323, end: 20110323
  21. EMEND [Concomitant]
     Route: 048
     Dates: start: 20110302, end: 20110303

REACTIONS (4)
  - CARDIO-RESPIRATORY ARREST [None]
  - PULMONARY ALVEOLAR HAEMORRHAGE [None]
  - ASPHYXIA [None]
  - NEUTROPHIL COUNT DECREASED [None]
